FAERS Safety Report 8782913 (Version 1)
Quarter: 2012Q4

REPORT INFORMATION
  Report Type: Report from Study
  Country: US (occurrence: US)
  Receive Date: 20120913
  Receipt Date: 20120913
  Transmission Date: 20130627
  Serious: No
  Sender: FDA-Public Use
  Company Number: US-VERTEX PHARMACEUTICAL INC.-AE-2012-009917

PATIENT
  Sex: Male
  Weight: 61.36 kg

DRUGS (7)
  1. INCIVEK [Suspect]
     Indication: HEPATITIS C
     Route: 048
  2. PEGASYS [Concomitant]
     Indication: HEPATITIS C
  3. RIBAPAK PAK [Concomitant]
     Indication: HEPATITIS C
  4. AMLODIPINE [Concomitant]
  5. METOPROLOL [Concomitant]
  6. SPIRONO/ HCTZ [Concomitant]
  7. WARFARIN [Concomitant]

REACTIONS (2)
  - Influenza like illness [Unknown]
  - Dry mouth [Unknown]
